FAERS Safety Report 9251457 (Version 1)
Quarter: 2013Q1

REPORT INFORMATION
  Report Type: Spontaneous
  Country: US (occurrence: None)
  Receive Date: 20130305
  Receipt Date: 20130305
  Transmission Date: 20140127
  Serious: Yes (Hospitalization, Other)
  Sender: FDA-Public Use
  Company Number: 163-21880-12063410

PATIENT
  Age: 31 Year
  Sex: Male

DRUGS (21)
  1. REVLIMID [Suspect]
     Indication: HEPATOCELLULAR CARCINOMA
     Dosage: 25 MG, 21 IN 28 D, PO
     Route: 048
     Dates: start: 20120423
  2. HYDROMORPHONE (HYDROMORPHONE) (UNKNOWN) (HYDROMORPHONE) [Concomitant]
     Dosage: 2-4MG, EVERY 4-6 HOURS AS NEEDED, PO
     Route: 048
  3. LOVENOX (HEPARIN-FRACTION, SODIUM SALT) (INJECTION) [Concomitant]
     Dosage: 90 MG, 1 IN 1 D, SC
     Route: 058
     Dates: start: 200804
  4. URSODIOL (URSODEOXYCHOLIC ACID) (UNKNOWN) [Concomitant]
     Dosage: 1-2 X/DAY, PO
     Route: 048
  5. ASPIRIN (ACETYLSALICYLIC ACID) (UNKNOWN) (ACETYLSALICYLIC ACID) [Concomitant]
     Dosage: 81 MG, 1 IN 1 D, PO
     Route: 048
     Dates: end: 201206
  6. OMEPRAZOLE (OMEPRAZOLE) (UNKNOWN) [Concomitant]
     Dosage: 20 MG, 1 IN 1 D, UNK
  7. DOCUSATE (DOCUSATE) (UNKNOWN) [Concomitant]
     Dosage: AS NEEDED, UNK
  8. BISACODYL (BISACODYL) (UNKNOWN) [Concomitant]
     Dosage: AS NEEDED, UNK
  9. LEVAQUIN (LEVOFLOXACIN) (UNKNOWN) [Concomitant]
  10. OXYCONTIN (OXYCODONE HYDROCHLORIDE) (UNKNOWN) [Concomitant]
     Dosage: 20MG/40MG, MORNING/NIGHT, UNK
  11. MELATONIN (MELATONIN) (UNKNOWN) [Concomitant]
  12. FLUID (BARIUM SULFATE) (UNKNOWN) [Concomitant]
     Dosage: 1 LIT, IVB
     Dates: start: 201206
  13. LEVOFLOXACIN (LEVOFLOXACIN) (UNKNOWN) [Concomitant]
     Dosage: 500 MG, 1 IN 1 D, PO
     Route: 048
  14. LACTULOSE (LACTULOSE) (UNKNOWN) [Concomitant]
     Dosage: AS NEEDED, UNK
  15. VITAMIN D3 (COLECALCIFEROL) (UNKNOWN) [Concomitant]
     Dosage: 5000 UNITS, 1 IN 1 D, UNK
  16. OXYGEN (OXYGEN) (GAS FOR INHALATION) [Concomitant]
     Dosage: INH
     Route: 055
  17. PROTONIX (UNKNOWN) [Concomitant]
     Dosage: 20 MG, 1 IN 1 D, PO
     Route: 048
  18. TYLENOL (PARACETAMOL) (UNKNOWN) [Concomitant]
     Dosage: 500 MG, EVERY 6 HOURS AS NEEDED, PO
     Route: 048
  19. LASIX (FUROSEMIDE) (UNKNOWN) [Concomitant]
     Dosage: 40 MG, 1 IN 1 D, PO
     Route: 048
  20. SPIRONOLACTONE (SPIRONOLACTONE) (UNKNOWN) [Concomitant]
     Dosage: 100 MG, 1 IN 1 D, PO
     Route: 048
  21. ZOFRAN (ONDANSETRON HYDROCHLORIDE) (UNKNOWN) [Concomitant]
     Dosage: AS NEEDED, UNK

REACTIONS (3)
  - Peritoneal haemorrhage [None]
  - Fluid overload [None]
  - Rash [None]
